FAERS Safety Report 8483667 (Version 24)
Quarter: 2015Q1

REPORT INFORMATION
  Report Type: Report from Study
  Country: DE (occurrence: DE)
  Receive Date: 20120329
  Receipt Date: 20150304
  Transmission Date: 20150721
  Serious: Yes (Hospitalization, Other)
  Sender: FDA-Public Use
  Company Number: DE-ROCHE-1050068

PATIENT
  Age: 48 Year
  Sex: Female
  Weight: 56.5 kg

DRUGS (7)
  1. VEMURAFENIB [Suspect]
     Active Substance: VEMURAFENIB
     Route: 048
     Dates: start: 20120416, end: 20120428
  2. TARDYFERON (FERROUS SULFATE) [Concomitant]
     Active Substance: FERROUS SULFATE\FERROUS SULFATE, DRIED
     Route: 065
     Dates: start: 20120319
  3. VEMURAFENIB [Suspect]
     Active Substance: VEMURAFENIB
     Dosage: THERAPY RESTARTED
     Route: 048
     Dates: start: 20120331, end: 20120410
  4. VEMURAFENIB [Suspect]
     Active Substance: VEMURAFENIB
     Route: 048
     Dates: start: 20120428
  5. CERAZETTE (DESOGESTREL) [Concomitant]
     Route: 065
     Dates: start: 20120316
  6. VEMURAFENIB [Suspect]
     Active Substance: VEMURAFENIB
     Indication: METASTATIC MALIGNANT MELANOMA
     Route: 048
     Dates: start: 20120118, end: 20120317
  7. TARDYFERON (FERROUS SULFATE) [Concomitant]
     Active Substance: FERROUS SULFATE\FERROUS SULFATE, DRIED
     Route: 065
     Dates: start: 20120227

REACTIONS (2)
  - Pulmonary toxicity [Recovering/Resolving]
  - Keratoacanthoma [Recovered/Resolved]

NARRATIVE: CASE EVENT DATE: 20120315
